FAERS Safety Report 7063176-6 (Version None)
Quarter: 2010Q4

REPORT INFORMATION
  Report Type: 
  Country: None (occurrence: None)
  Receive Date: 20101026
  Receipt Date: 20100504
  Transmission Date: 20110411
  Serious: No
  Sender: FDA-Public Use
  Company Number: US-PFIZER INC-2010056658

PATIENT
  Age: 67 Year
  Sex: Female

DRUGS (4)
  1. LIPITOR [Suspect]
     Dosage: UNK
  2. VYTORIN [Suspect]
     Dosage: UNK
  3. NEXIUM [Suspect]
     Dosage: UNK
  4. SITAGLIPTIN [Suspect]
     Dosage: UNK

REACTIONS (1)
  - MYALGIA [None]
